FAERS Safety Report 4967951-0 (Version None)
Quarter: 2006Q2

REPORT INFORMATION
  Report Type: 
  Country: None (occurrence: None)
  Receive Date: 20060410
  Receipt Date: 20060301
  Transmission Date: 20061013
  Serious: Yes (Hospitalization, Disabling)
  Sender: FDA-Public Use
  Company Number: US-MERCK-0603USA00440

PATIENT
  Age: 54 Year
  Sex: Female
  Weight: 101 kg

DRUGS (1)
  1. VIOXX [Suspect]
     Indication: ARTHRITIS
     Route: 048
     Dates: start: 20000101

REACTIONS (2)
  - AORTIC OCCLUSION [None]
  - JOINT INJURY [None]
